APPROVED DRUG PRODUCT: DIFLUNISAL
Active Ingredient: DIFLUNISAL
Strength: 500MG
Dosage Form/Route: TABLET;ORAL
Application: A074285 | Product #002
Applicant: PUREPAC PHARMACEUTICAL CO
Approved: May 7, 1996 | RLD: No | RS: No | Type: DISCN